FAERS Safety Report 8266249-5 (Version None)
Quarter: 2012Q2

REPORT INFORMATION
  Report Type: 
  Country: None (occurrence: None)
  Receive Date: 20120406
  Receipt Date: 20120328
  Transmission Date: 20120825
  Serious: Yes (Other)
  Sender: FDA-Public Use
  Company Number: JP-VERTEX PHARMACEUTICALS INC.-AE-2012-004353

PATIENT
  Age: 46 Year
  Sex: Female

DRUGS (3)
  1. TELAVIC (TELAPREVIR) [Suspect]
     Route: 048
     Dates: start: 20120306
  2. PEGINTERFERON [Concomitant]
     Route: 051
     Dates: start: 20120306
  3. REBETOL [Concomitant]
     Route: 048
     Dates: start: 20120306

REACTIONS (1)
  - ERYTHEMA MULTIFORME [None]
